FAERS Safety Report 8988616 (Version 1)
Quarter: 2012Q4

REPORT INFORMATION
  Report Type: Spontaneous
  Country: US (occurrence: None)
  Receive Date: 20121218
  Receipt Date: 20121218
  Transmission Date: 20130627
  Serious: Yes (Hospitalization)
  Sender: FDA-Public Use
  Company Number: AUR-APL-2012-05190

PATIENT
  Age: 71 Year
  Sex: Female
  Weight: 83.92 kg

DRUGS (16)
  1. CIPROFLOXACIN (CIPROFLOXACIN) [Suspect]
     Indication: PROSTATE INFECTION
  2. NITROFURANTOIN [Suspect]
     Dosage: (2 IN 1 D)
     Dates: start: 20121109, end: 20121115
  3. WARFARIN (WARFARIN) [Concomitant]
  4. BABY ASPIRIN (ACETYLSALICYLIC ACID) [Concomitant]
  5. CLONIDINE ( CLONIDINE ) [Concomitant]
  6. DILTIAZEM (DILTIAZEM) (DILTIAZEM) [Concomitant]
  7. HYDROCHLOROTHIAZIDE (HYDROCHLOROTHIAZIDE) [Concomitant]
  8. LISINOPRIL (LISINOPRIL ) [Concomitant]
  9. SIMVASTATIN (SIMVASTATIN) [Concomitant]
  10. NIACIN (NICOTINIC ACID) [Concomitant]
  11. TERAZOSIN (TERAZOSIN) [Concomitant]
  12. VICODIN PRN (VICODIN) [Concomitant]
  13. MULTIVITAMIN (MULTIVITAMIN /00831701/) [Concomitant]
  14. FISH OIL (FISH OIL) [Concomitant]
  15. VIT C (ASCORBIC ACID) [Concomitant]
  16. VIT D3 (COLECALCIFEROL) [Concomitant]

REACTIONS (5)
  - Somnolence [None]
  - Feeling abnormal [None]
  - Gait disturbance [None]
  - Prostate infection [None]
  - Guillain-Barre syndrome [None]
